FAERS Safety Report 17055633 (Version 1)
Quarter: 2019Q4

REPORT INFORMATION
  Report Type: Report from Study
  Country: FR (occurrence: FR)
  Receive Date: 20191120
  Receipt Date: 20191120
  Transmission Date: 20200122
  Serious: Yes (Hospitalization, Other)
  Sender: FDA-Public Use
  Company Number: PHHY2016FR081835

PATIENT
  Age: 5 Year
  Sex: Male
  Weight: 38 kg

DRUGS (4)
  1. EUTHYROX [Concomitant]
     Active Substance: LEVOTHYROXINE SODIUM
     Indication: HYPOTHYROIDISM
     Dosage: UNK
     Route: 048
     Dates: start: 20180119
  2. LEVOTHYROXINE. [Concomitant]
     Active Substance: LEVOTHYROXINE
     Indication: HYPOTHYROIDISM
     Dosage: UNK
     Route: 048
     Dates: start: 20130410, end: 20180118
  3. SOMATROPIN. [Suspect]
     Active Substance: SOMATROPIN
     Indication: PRADER-WILLI SYNDROME
     Dosage: 0.021 MG, QD
     Route: 058
     Dates: start: 20131016
  4. VITAMIN D [Concomitant]
     Active Substance: VITAMIN D NOS
     Indication: PROPHYLAXIS
     Route: 048

REACTIONS (11)
  - Headache [Recovered/Resolved]
  - Dyspnoea [Recovered/Resolved]
  - Obesity [Recovered/Resolved]
  - Bronchitis [Recovered/Resolved]
  - Tonsillar hypertrophy [Recovered/Resolved]
  - Condition aggravated [Recovered/Resolved]
  - Hypercholesterolaemia [Recovered/Resolved]
  - Conjunctivitis [Recovered/Resolved]
  - Obesity [Not Recovered/Not Resolved]
  - Pruritus [Recovered/Resolved]
  - Snoring [Recovered/Resolved]

NARRATIVE: CASE EVENT DATE: 201401
